FAERS Safety Report 23711665 (Version 2)
Quarter: 2024Q2

REPORT INFORMATION
  Report Type: Spontaneous
  Country: JP (occurrence: JP)
  Receive Date: 20240405
  Receipt Date: 20240411
  Transmission Date: 20240716
  Serious: Yes (Other)
  Sender: FDA-Public Use
  Company Number: JP-GLAXOSMITHKLINE-JP2024JPN041234

PATIENT

DRUGS (1)
  1. VALTREX [Suspect]
     Active Substance: VALACYCLOVIR HYDROCHLORIDE
     Indication: Herpes zoster
     Dosage: UNK

REACTIONS (7)
  - Toxic encephalopathy [Unknown]
  - Altered state of consciousness [Recovered/Resolved]
  - Renal impairment [Recovering/Resolving]
  - Hyperkalaemia [Recovered/Resolved]
  - Nephropathy [Unknown]
  - Fall [Unknown]
  - Dyslalia [Unknown]
